FAERS Safety Report 7300750-3 (Version None)
Quarter: 2011Q1

REPORT INFORMATION
  Report Type: 
  Country: None (occurrence: None)
  Receive Date: 20110218
  Receipt Date: 20110208
  Transmission Date: 20110831
  Serious: Yes (Death)
  Sender: FDA-Public Use
  Company Number: DK-AMGEN-DNKCT2011008241

PATIENT
  Age: 81 Year
  Sex: Male

DRUGS (3)
  1. METHOTREXAT [Concomitant]
     Dosage: UNK UNK, UNK
     Route: 048
     Dates: start: 20091008, end: 20101105
  2. ETANERCEPT [Suspect]
     Indication: RHEUMATOID ARTHRITIS
     Dosage: 25 MG, QWK
     Dates: start: 20101019, end: 20101105
  3. PREDNISOLONE [Concomitant]
     Dosage: UNK UNK, UNK
     Dates: start: 20070115, end: 20101105

REACTIONS (2)
  - CARDIAC FAILURE [None]
  - PNEUMONIA [None]
